FAERS Safety Report 16654225 (Version 1)
Quarter: 2019Q3

REPORT INFORMATION
  Report Type: Spontaneous
  Country: US (occurrence: US)
  Receive Date: 20190619
  Receipt Date: 20190619
  Transmission Date: 20191004
  Serious: No
  Sender: FDA-Public Use
  Company Number: None

PATIENT
  Age: 63 Year
  Sex: Female

DRUGS (4)
  1. IBRANCE [Suspect]
     Active Substance: PALBOCICLIB
     Dates: start: 20190405
  2. XGEVA [Concomitant]
     Active Substance: DENOSUMAB
  3. ELIQUIS [Suspect]
     Active Substance: APIXABAN
  4. FASLODEX [Suspect]
     Active Substance: FULVESTRANT

REACTIONS (1)
  - Diarrhoea [None]

NARRATIVE: CASE EVENT DATE: 20190619
